FAERS Safety Report 6120999-5 (Version None)
Quarter: 2009Q1

REPORT INFORMATION
  Report Type: 
  Country: None (occurrence: None)
  Receive Date: 20090317
  Receipt Date: 20090305
  Transmission Date: 20090719
  Serious: Yes (Hospitalization)
  Sender: FDA-Public Use
  Company Number: PHHY2009GB03251

PATIENT
  Sex: Male

DRUGS (7)
  1. CLOZARIL [Suspect]
     Indication: SCHIZOPHRENIA
     Dosage: 500 MG, UNK
     Route: 048
     Dates: start: 20081107
  2. CLOZARIL [Suspect]
     Dosage: 250 MG, QD
     Route: 048
  3. PROPRANOLOL [Concomitant]
     Dosage: UNK
  4. CYPROTERONE ACETATE [Concomitant]
     Dosage: UNK
  5. VALPROIC ACID [Concomitant]
     Dosage: UNK
  6. HYOSCINE [Concomitant]
     Indication: SALIVARY HYPERSECRETION
     Dosage: UNK
  7. ZOPICLONE [Concomitant]
     Dosage: UNK

REACTIONS (11)
  - BACTERIAL INFECTION [None]
  - BLOOD CREATININE INCREASED [None]
  - BLOOD SODIUM DECREASED [None]
  - BLOOD UREA INCREASED [None]
  - DEHYDRATION [None]
  - HAEMOGLOBIN DECREASED [None]
  - MENTAL IMPAIRMENT [None]
  - PLATELET COUNT INCREASED [None]
  - RENAL IMPAIRMENT [None]
  - SCHIZOPHRENIA [None]
  - URINARY TRACT INFECTION [None]
